FAERS Safety Report 10203114 (Version 1)
Quarter: 2014Q2

REPORT INFORMATION
  Report Type: Report from Study
  Country: BR (occurrence: BR)
  Receive Date: 20140529
  Receipt Date: 20140529
  Transmission Date: 20141212
  Serious: Yes (Other)
  Sender: FDA-Public Use
  Company Number: PHHY2014BR061420

PATIENT
  Sex: Female

DRUGS (2)
  1. GALVUS [Suspect]
     Indication: DIABETES MELLITUS
     Dosage: UNK UKN, UNK
  2. METFORMIN [Suspect]
     Indication: DIABETES MELLITUS
     Dosage: UNK UKN, UNK

REACTIONS (2)
  - Intestinal polyp [Unknown]
  - Gastric polyps [Unknown]
